FAERS Safety Report 25846685 (Version 1)
Quarter: 2025Q3

REPORT INFORMATION
  Report Type: Spontaneous
  Country: US (occurrence: US)
  Receive Date: 20250925
  Receipt Date: 20250925
  Transmission Date: 20251021
  Serious: No
  Sender: SANOFI AVENTIS
  Company Number: US-SA-2025SA285480

PATIENT
  Sex: Female

DRUGS (23)
  1. DUPIXENT [Suspect]
     Active Substance: DUPILUMAB
     Indication: Asthma
     Dosage: 300 MG, QOW
     Route: 058
     Dates: start: 202505, end: 202508
  2. GABAPENTIN [Concomitant]
     Active Substance: GABAPENTIN
  3. FUROSEMIDE [Concomitant]
     Active Substance: FUROSEMIDE
  4. EZETIMIBE [Concomitant]
     Active Substance: EZETIMIBE
  5. DORZOLAMIDE [Concomitant]
     Active Substance: DORZOLAMIDE
  6. CALCIUM CITRATE\CHOLECALCIFEROL [Concomitant]
     Active Substance: CALCIUM CITRATE\CHOLECALCIFEROL
  7. CETIRIZINE [Concomitant]
     Active Substance: CETIRIZINE HYDROCHLORIDE
  8. BIOTIN [Concomitant]
     Active Substance: BIOTIN
  9. AZELASTINE [Concomitant]
     Active Substance: AZELASTINE
  10. ASPIRIN [Concomitant]
     Active Substance: ASPIRIN
  11. AMLODIPINE [Concomitant]
     Active Substance: AMLODIPINE BESYLATE
  12. VYZULTA [Concomitant]
     Active Substance: LATANOPROSTENE BUNOD
  13. Vitamin D3 ABCvit [Concomitant]
  14. VITAMIN B12 [Concomitant]
     Active Substance: CYANOCOBALAMIN
  15. VENTOLIN [Concomitant]
     Active Substance: ALBUTEROL SULFATE
  16. VENLAFAXINE [Concomitant]
     Active Substance: VENLAFAXINE HYDROCHLORIDE
  17. TRELEGY ELLIPTA [Concomitant]
     Active Substance: FLUTICASONE FUROATE\UMECLIDINIUM BROMIDE\VILANTEROL TRIFENATATE
  18. OMEPRAZOLE [Concomitant]
     Active Substance: OMEPRAZOLE
  19. VITAMINS [Concomitant]
     Active Substance: VITAMINS
  20. MONTELUKAST [Concomitant]
     Active Substance: MONTELUKAST
  21. METOPROLOL [Concomitant]
     Active Substance: METOPROLOL
  22. MAGNESIUM [Concomitant]
     Active Substance: MAGNESIUM
  23. LOSARTAN [Concomitant]
     Active Substance: LOSARTAN

REACTIONS (2)
  - Rhinorrhoea [Unknown]
  - Drug ineffective [Unknown]

NARRATIVE: CASE EVENT DATE: 20250101
